FAERS Safety Report 5003314-X (Version None)
Quarter: 2006Q2

REPORT INFORMATION
  Report Type: 
  Country: None (occurrence: None)
  Receive Date: 20060511
  Receipt Date: 20060428
  Transmission Date: 20061013
  Serious: Yes (Other)
  Sender: FDA-Public Use
  Company Number: CHNY2006CH01426

PATIENT
  Age: 65 Year
  Sex: Female

DRUGS (1)
  1. PSEUDOEPHEDRINE HYDROCHLORIDE [Suspect]
     Indication: NASAL DISORDER
     Dosage: 120 MG, ONCE/SINGLE, ORAL
     Route: 048
     Dates: start: 20051127, end: 20051127

REACTIONS (2)
  - ANGIONEUROTIC OEDEMA [None]
  - RASH [None]
